FAERS Safety Report 21643217 (Version 1)
Quarter: 2022Q4

REPORT INFORMATION
  Report Type: Spontaneous
  Country: JP (occurrence: JP)
  Receive Date: 20221125
  Receipt Date: 20221125
  Transmission Date: 20230113
  Serious: Yes (Other)
  Sender: FDA-Public Use
  Company Number: JP-002147023-NVSC2022JP264302

PATIENT
  Age: 4 Year
  Sex: Male

DRUGS (6)
  1. CARBOPLATIN [Suspect]
     Active Substance: CARBOPLATIN
     Indication: Retinoblastoma
     Dosage: UNK, CYCLIC (2 CYCLES OF CHEMOTHERAPY)
     Route: 065
  2. CARBOPLATIN [Suspect]
     Active Substance: CARBOPLATIN
     Dosage: UNK, CYCLIC (4 CYCLES OF VEC REGIMEN)
     Route: 065
  3. ETOPOSIDE [Suspect]
     Active Substance: ETOPOSIDE
     Indication: Retinoblastoma
     Dosage: UNK, CYCLIC (2 CYCLES OF CHEMOTHERAPY)
     Route: 065
  4. ETOPOSIDE [Suspect]
     Active Substance: ETOPOSIDE
     Dosage: UNK, CYCLIC (4 CYCLES OF VEC REGIMEN)
     Route: 065
  5. VINCRISTINE SULFATE [Suspect]
     Active Substance: VINCRISTINE SULFATE
     Indication: Retinoblastoma
     Dosage: UNK, CYCLIC (2 CYCLES OF CHEMOTHERAPY)
     Route: 065
  6. VINCRISTINE SULFATE [Suspect]
     Active Substance: VINCRISTINE SULFATE
     Dosage: UNK, CYCLIC (4 CYCLES OF VEC REGIMEN)
     Route: 065

REACTIONS (4)
  - Medulloblastoma [Unknown]
  - Second primary malignancy [Unknown]
  - Product use issue [Unknown]
  - Product use in unapproved indication [Unknown]
